FAERS Safety Report 7132846-3 (Version None)
Quarter: 2010Q4

REPORT INFORMATION
  Report Type: 
  Country: None (occurrence: None)
  Receive Date: 20101202
  Receipt Date: 20101122
  Transmission Date: 20110411
  Serious: Yes (Other)
  Sender: FDA-Public Use
  Company Number: US-PFIZER INC-2010155080

PATIENT
  Sex: Female

DRUGS (4)
  1. LYRICA [Suspect]
     Indication: CONVULSION
     Dosage: 25 MG, 3X/DAY
     Route: 048
     Dates: start: 20100701
  2. LYRICA [Suspect]
     Dosage: 125 MG, 1X/DAY
     Dates: start: 20100101
  3. LYRICA [Suspect]
     Dosage: 150 MG, 1X/DAY
  4. LYRICA [Suspect]
     Dosage: 200 MG, 2X/DAY
     Dates: start: 20101018

REACTIONS (7)
  - AMNESIA [None]
  - BALANCE DISORDER [None]
  - CONFUSIONAL STATE [None]
  - CONVULSION [None]
  - DIPLOPIA [None]
  - SOMNOLENCE [None]
  - VISION BLURRED [None]
